FAERS Safety Report 17151423 (Version 1)
Quarter: 2019Q4

REPORT INFORMATION
  Report Type: Spontaneous
  Country: EE (occurrence: EE)
  Receive Date: 20191213
  Receipt Date: 20191213
  Transmission Date: 20200122
  Serious: Yes (Death, Life-Threatening, Hospitalization, Other)
  Sender: FDA-Public Use
  Company Number: EE-PFIZER INC-2019538546

PATIENT
  Age: 58 Year
  Sex: Male

DRUGS (6)
  1. TELMISARTAN. [Concomitant]
     Active Substance: TELMISARTAN
     Indication: SPINAL CORD COMPRESSION
     Dosage: 80 MG, 1X/DAY (80 MG TABLETS)
     Route: 048
     Dates: start: 20181217
  2. ZOMETA [Concomitant]
     Active Substance: ZOLEDRONIC ACID
     Indication: METASTASES TO BONE
     Dosage: 4 MG, SINGLE
     Route: 042
     Dates: start: 20190906, end: 20190906
  3. DEXAMETHASONE. [Concomitant]
     Active Substance: DEXAMETHASONE
     Indication: SPINAL CORD COMPRESSION
     Dosage: 20 MG, 1X/DAY
     Route: 048
     Dates: start: 20190911, end: 20190916
  4. OMEPRAZOLE. [Concomitant]
     Active Substance: OMEPRAZOLE
     Dosage: 20 MG, 1X/DAY
     Route: 048
     Dates: start: 20190905, end: 20190916
  5. SUTENT [Suspect]
     Active Substance: SUNITINIB MALATE
     Indication: RENAL CANCER STAGE IV
     Dosage: 50 MG, ONCE A DAY (50 MG HARD CAPSULES)
     Route: 048
     Dates: start: 20190907, end: 20190916
  6. MEDROL [Concomitant]
     Active Substance: METHYLPREDNISOLONE
     Indication: RHEUMATOID ARTHRITIS
     Dosage: 8 MG, 1X/DAY (4 MG TABLET)
     Route: 048
     Dates: start: 20190211, end: 20190911

REACTIONS (5)
  - Intestinal ischaemia [Fatal]
  - Peritonitis [Fatal]
  - Pulmonary embolism [Fatal]
  - Large intestine perforation [Fatal]
  - Septic shock [Fatal]

NARRATIVE: CASE EVENT DATE: 20190915
